FAERS Safety Report 15271663 (Version 2)
Quarter: 2018Q3

REPORT INFORMATION
  Report Type: Spontaneous
  Country: US (occurrence: US)
  Receive Date: 20180813
  Receipt Date: 20180926
  Transmission Date: 20181010
  Serious: Yes (Hospitalization)
  Sender: FDA-Public Use
  Company Number: US-ASTRAZENECA-2018SF00672

PATIENT
  Sex: Male
  Weight: 113.4 kg

DRUGS (3)
  1. BYDUREON BCISE [Suspect]
     Active Substance: EXENATIDE
     Route: 058
  2. INSULIN [Concomitant]
     Active Substance: INSULIN NOS
  3. INSULIN [Concomitant]
     Active Substance: INSULIN NOS

REACTIONS (8)
  - Incorrect dose administered by device [Unknown]
  - Device malfunction [Unknown]
  - Wrong technique in device usage process [Unknown]
  - Device leakage [Unknown]
  - Injection site haemorrhage [Unknown]
  - Blood glucose increased [Unknown]
  - Headache [Unknown]
  - Hypothalamo-pituitary disorder [Unknown]
